FAERS Safety Report 17892898 (Version 2)
Quarter: 2020Q2

REPORT INFORMATION
  Report Type: Spontaneous
  Country: US (occurrence: US)
  Receive Date: 20200613
  Receipt Date: 20200619
  Transmission Date: 20200714
  Serious: Yes (Hospitalization, Other)
  Sender: FDA-Public Use
  Company Number: US-DRREDDYS-USA/USA/20/0123759

PATIENT
  Sex: Female

DRUGS (1)
  1. TERBUTALINE SULFATE. [Suspect]
     Active Substance: TERBUTALINE SULFATE
     Indication: TOCOLYSIS
     Route: 064

REACTIONS (2)
  - Ventricular tachycardia [Unknown]
  - Foetal exposure during pregnancy [Unknown]
